FAERS Safety Report 7277784-0 (Version None)
Quarter: 2011Q1

REPORT INFORMATION
  Report Type: 
  Country: None (occurrence: None)
  Receive Date: 20110207
  Receipt Date: 20101119
  Transmission Date: 20110831
  Serious: No
  Sender: FDA-Public Use
  Company Number: A0894266A

PATIENT
  Age: 40 Year
  Sex: Male

DRUGS (2)
  1. OLUX E FOAM (EMULSION AEROSOL FOAM) [Suspect]
     Indication: ECZEMA
     Dosage: 1APP TWICE PER DAY
     Route: 061
     Dates: start: 20070101, end: 20101112
  2. PREDNISONE [Concomitant]

REACTIONS (3)
  - DRUG INEFFECTIVE [None]
  - PRURITUS [None]
  - SKIN ULCER [None]
